FAERS Safety Report 6432273-8 (Version None)
Quarter: 2009Q4

REPORT INFORMATION
  Report Type: 
  Country: None (occurrence: None)
  Receive Date: 20091109
  Receipt Date: 20090902
  Transmission Date: 20100525
  Serious: Yes (Other)
  Sender: FDA-Public Use
  Company Number: PHEH2009US14963

PATIENT

DRUGS (1)
  1. FOCALIN XR [Suspect]

REACTIONS (2)
  - BONE DISORDER [None]
  - ROAD TRAFFIC ACCIDENT [None]
